FAERS Safety Report 4819601-1 (Version None)
Quarter: 2005Q4

REPORT INFORMATION
  Report Type: 
  Country: None (occurrence: None)
  Receive Date: 20051102
  Receipt Date: 20051027
  Transmission Date: 20060501
  Serious: Yes (Death, Other)
  Sender: FDA-Public Use
  Company Number: USA-2005-0021691

PATIENT
  Age: 51 Year
  Sex: Female

DRUGS (1)
  1. OXYCONTIN [Suspect]
     Dosage: MG, VAGINAL
     Route: 067

REACTIONS (2)
  - INADEQUATE ANALGESIA [None]
  - INCORRECT ROUTE OF DRUG ADMINISTRATION [None]
